FAERS Safety Report 4843979-6 (Version None)
Quarter: 2005Q4

REPORT INFORMATION
  Report Type: 
  Country: None (occurrence: None)
  Receive Date: 20051130
  Receipt Date: 20051130
  Transmission Date: 20060501
  Serious: Yes (Hospitalization)
  Sender: FDA-Public Use
  Company Number: None

PATIENT
  Age: 20 Year
  Sex: Female
  Weight: 75.5 kg

DRUGS (2)
  1. NARDIL [Suspect]
     Dates: start: 20040101, end: 20050501
  2. CYMBALTA [Suspect]
     Dosage: 30MG Q DAY PO
     Route: 048
     Dates: start: 20050509, end: 20050509

REACTIONS (4)
  - NAUSEA [None]
  - PANIC ATTACK [None]
  - SEROTONIN SYNDROME [None]
  - VOMITING [None]
